FAERS Safety Report 8967404 (Version 1)
Quarter: 2012Q4

REPORT INFORMATION
  Report Type: 
  Country: US (occurrence: US)
  Receive Date: 20121217
  Receipt Date: 20121217
  Transmission Date: 20130627
  Serious: Yes (Hospitalization)
  Sender: FDA-Public Use
  Company Number: US-BIOGENIDEC-2012BI058818

PATIENT
  Age: 64 Year
  Sex: Female

DRUGS (2)
  1. AVONEX [Suspect]
     Indication: MULTIPLE SCLEROSIS
     Route: 030
     Dates: start: 19980301
  2. AVONEX [Suspect]
     Indication: MULTIPLE SCLEROSIS
     Route: 030
     Dates: start: 20020619, end: 20120501

REACTIONS (6)
  - Infected skin ulcer [Recovered/Resolved]
  - Myocardial infarction [Recovered/Resolved]
  - Ankle operation [Recovered/Resolved]
  - Dysstasia [Recovered/Resolved]
  - Memory impairment [Recovered/Resolved]
  - Fatigue [Not Recovered/Not Resolved]
